FAERS Safety Report 6884321-9 (Version None)
Quarter: 2010Q3

REPORT INFORMATION
  Report Type: 
  Country: None (occurrence: None)
  Receive Date: 20100729
  Receipt Date: 20070613
  Transmission Date: 20110219
  Serious: No
  Sender: FDA-Public Use
  Company Number: US-PFIZER INC-2007049083

PATIENT
  Sex: Female
  Weight: 79.545 kg

DRUGS (3)
  1. CELEBREX [Suspect]
     Indication: BONE PAIN
     Dates: start: 20070613
  2. CELEBREX [Suspect]
     Indication: ARTHRALGIA
  3. ORTHO TRI-CYCLEN [Concomitant]
     Indication: CONTRACEPTION

REACTIONS (3)
  - ERYTHEMA [None]
  - FEELING HOT [None]
  - FLUSHING [None]
